FAERS Safety Report 15245826 (Version 1)
Quarter: 2018Q3

REPORT INFORMATION
  Report Type: Spontaneous
  Country: NL (occurrence: NL)
  Receive Date: 20180806
  Receipt Date: 20180806
  Transmission Date: 20181010
  Serious: Yes (Hospitalization, Other)
  Sender: FDA-Public Use
  Company Number: PHHY2018NL009473

PATIENT
  Age: 66 Year
  Sex: Female

DRUGS (9)
  1. CYCLOPHOSPHAMIDE. [Suspect]
     Active Substance: CYCLOPHOSPHAMIDE
     Indication: PROTEINURIA
     Dosage: UNK
     Route: 065
  2. VALPROIC ACID. [Suspect]
     Active Substance: VALPROIC ACID
     Dosage: 2500 MG, QD
     Route: 065
  3. VALPROIC ACID. [Suspect]
     Active Substance: VALPROIC ACID
     Dosage: 3000 MG, QD
     Route: 065
  4. PREDNISONE. [Concomitant]
     Active Substance: PREDNISONE
     Indication: PROTEINURIA
     Route: 065
  5. VALPROIC ACID. [Suspect]
     Active Substance: VALPROIC ACID
     Indication: MANIA
     Dosage: 4000 MG, QD
     Route: 065
  6. LITHIUM. [Suspect]
     Active Substance: LITHIUM
     Indication: PRODUCT USED FOR UNKNOWN INDICATION
     Dosage: 400 MG, QD
     Route: 065
  7. VALPROIC ACID. [Suspect]
     Active Substance: VALPROIC ACID
     Dosage: 300 MG, QD
     Route: 065
  8. LITHIUM. [Suspect]
     Active Substance: LITHIUM
     Dosage: 800 MG, QD
     Route: 065
  9. CITALOPRAM [Concomitant]
     Active Substance: CITALOPRAM HYDROBROMIDE
     Indication: PRODUCT USED FOR UNKNOWN INDICATION
     Route: 065

REACTIONS (12)
  - Cerebral atrophy [Recovered/Resolved]
  - Toxicity to various agents [Recovered/Resolved]
  - Pancytopenia [Unknown]
  - Drug level increased [Recovered/Resolved]
  - Somnolence [Recovered/Resolved]
  - Apathy [Recovered/Resolved]
  - Encephalopathy [Unknown]
  - Overdose [Recovered/Resolved]
  - Decreased activity [Recovered/Resolved]
  - Disorientation [Recovered/Resolved]
  - Condition aggravated [Recovered/Resolved]
  - Cognitive disorder [Recovered/Resolved]
